FAERS Safety Report 6666716-1 (Version None)
Quarter: 2010Q2

REPORT INFORMATION
  Report Type: 
  Country: None (occurrence: None)
  Receive Date: 20100402
  Receipt Date: 20100402
  Transmission Date: 20101027
  Serious: Yes (Other)
  Sender: FDA-Public Use
  Company Number: None

PATIENT

DRUGS (5)
  1. LEVOTHYROXINE SODIUM [Suspect]
     Indication: HYPOTHYROIDISM
     Dosage: 1XDO PD QSI
     Dates: start: 20100319, end: 20100331
  2. PRENATAL TABS [Concomitant]
  3. PULMICORT FLEXHALER [Concomitant]
  4. PROAIR HFA [Concomitant]
  5. NEOMYCIN-POLYMYXIN-HC 3.S-10000 [Concomitant]

REACTIONS (2)
  - DIARRHOEA [None]
  - DRUG EXPOSURE DURING PREGNANCY [None]
